FAERS Safety Report 9710651 (Version 1)
Quarter: 2013Q4

REPORT INFORMATION
  Report Type: Spontaneous
  Country: US (occurrence: US)
  Receive Date: 20131126
  Receipt Date: 20131126
  Transmission Date: 20140711
  Serious: No
  Sender: FDA-Public Use
  Company Number: US-BRISTOL-MYERS SQUIBB COMPANY-19002369

PATIENT
  Age: 64 Year
  Sex: Male
  Weight: 93.42 kg

DRUGS (4)
  1. BYDUREON [Suspect]
     Indication: TYPE 2 DIABETES MELLITUS
     Route: 058
  2. ZOLOFT [Concomitant]
  3. METFORMIN [Concomitant]
  4. GLIMEPIRIDE [Concomitant]

REACTIONS (7)
  - Nausea [Recovering/Resolving]
  - Injection site pain [Unknown]
  - Dizziness [Not Recovered/Not Resolved]
  - Weight decreased [Unknown]
  - Dysgeusia [Not Recovered/Not Resolved]
  - Injection site bruising [Not Recovered/Not Resolved]
  - Eructation [Not Recovered/Not Resolved]
